FAERS Safety Report 6443549-2 (Version None)
Quarter: 2009Q4

REPORT INFORMATION
  Report Type: 
  Country: None (occurrence: None)
  Receive Date: 20091112
  Receipt Date: 20091027
  Transmission Date: 20100525
  Serious: Yes (Other)
  Sender: FDA-Public Use
  Company Number: 2009002121

PATIENT
  Age: 71 Year
  Sex: Female
  Weight: 42 kg

DRUGS (7)
  1. ERLOTINIB HYDROCHLORIDE [Suspect]
     Indication: LUNG ADENOCARCINOMA
     Dosage: 150 MG,QD,ORAL
     Route: 048
     Dates: start: 20090309, end: 20090429
  2. ADALAT [Concomitant]
  3. ALFAROL (ALFACALCIDOL) [Concomitant]
  4. FAMOTIDINE [Concomitant]
  5. LEVOTHYROXINE SODIUM [Concomitant]
  6. BIOFERMIN (BIOFERMIN) [Concomitant]
  7. JUZENTAIHOTO (JUZENTAIHOTO) [Concomitant]

REACTIONS (6)
  - DEEP VEIN THROMBOSIS [None]
  - MALIGNANT NEOPLASM PROGRESSION [None]
  - NON-SMALL CELL LUNG CANCER METASTATIC [None]
  - PULMONARY ARTERY THROMBOSIS [None]
  - PULMONARY EMBOLISM [None]
  - THROMBOPHLEBITIS [None]
